FAERS Safety Report 10173991 (Version 1)
Quarter: 2014Q2

REPORT INFORMATION
  Report Type: Spontaneous
  Country: US (occurrence: US)
  Receive Date: 20140515
  Receipt Date: 20140515
  Transmission Date: 20141212
  Serious: Yes (Disabling)
  Sender: FDA-Public Use
  Company Number: US-BRISTOL-MYERS SQUIBB COMPANY-20707659

PATIENT
  Age: 53 Year
  Sex: Male

DRUGS (6)
  1. ABILIFY [Suspect]
  2. CYMBALTA [Concomitant]
  3. CLONAZEPAM [Concomitant]
  4. ZEGERID [Concomitant]
  5. DICYCLOMINE [Concomitant]
  6. INSULIN [Concomitant]

REACTIONS (4)
  - Weight increased [Unknown]
  - Type 2 diabetes mellitus [Unknown]
  - Neuropathy peripheral [Unknown]
  - Visual impairment [Unknown]
